FAERS Safety Report 5678633-4 (Version None)
Quarter: 2008Q1

REPORT INFORMATION
  Report Type: 
  Country: None (occurrence: None)
  Receive Date: 20080325
  Receipt Date: 20080313
  Transmission Date: 20080703
  Serious: Yes (Hospitalization)
  Sender: FDA-Public Use
  Company Number: CA-AMGEN-QUU253950

PATIENT
  Sex: Female

DRUGS (10)
  1. ENBREL [Suspect]
     Indication: RHEUMATOID ARTHRITIS
     Route: 058
     Dates: start: 20070701, end: 20080201
  2. PARIET [Concomitant]
  3. MOBIC [Concomitant]
  4. PREDNISONE TAB [Concomitant]
  5. METOPROLOL TARTRATE [Concomitant]
  6. WARFARIN SODIUM [Concomitant]
  7. ACTONEL [Concomitant]
  8. METHOTREXATE [Concomitant]
  9. ZOVIRAX [Concomitant]
  10. CEPHALEXIN [Concomitant]
     Dates: start: 20071111

REACTIONS (1)
  - KNEE ARTHROPLASTY [None]
